FAERS Safety Report 5705370-X (Version None)
Quarter: 2008Q2

REPORT INFORMATION
  Report Type: 
  Country: None (occurrence: None)
  Receive Date: 20080415
  Receipt Date: 20080403
  Transmission Date: 20081010
  Serious: Yes (Other)
  Sender: FDA-Public Use
  Company Number: US-JNJFOC-20080401003

PATIENT
  Sex: Female
  Weight: 110 kg

DRUGS (1)
  1. TOPIRAMATE [Suspect]
     Indication: DRUG USE FOR UNKNOWN INDICATION
     Route: 048

REACTIONS (6)
  - ANGIOEDEMA [None]
  - ANGLE CLOSURE GLAUCOMA [None]
  - CONJUNCTIVAL OEDEMA [None]
  - MACULOPATHY [None]
  - MYOPIA [None]
  - VISUAL ACUITY REDUCED [None]
